FAERS Safety Report 5748959-4 (Version None)
Quarter: 2008Q2

REPORT INFORMATION
  Report Type: 
  Country: None (occurrence: None)
  Receive Date: 20080527
  Receipt Date: 20080521
  Transmission Date: 20081010
  Serious: Yes (Hospitalization)
  Sender: FDA-Public Use
  Company Number: GB-RANBAXY-2008RR-15349

PATIENT

DRUGS (6)
  1. CEPHALEXIN [Suspect]
     Indication: URINARY TRACT INFECTION
     Dosage: 500 MG, UNK
     Route: 048
     Dates: start: 20080425, end: 20080429
  2. FOLIC ACID [Concomitant]
     Indication: PREGNANCY
     Dosage: 5 MG, UNK
     Route: 048
     Dates: start: 20071201
  3. HYDROXOCOBALAMIN [Concomitant]
     Indication: VITAMIN B12 DEFICIENCY
     Dosage: UNK
     Route: 030
     Dates: start: 20071201
  4. LANSOPRAZOLE [Concomitant]
     Indication: DUODENOGASTRIC REFLUX
     Dosage: 15 MG, UNK
     Route: 048
     Dates: start: 20071201
  5. MOTILIUM [Concomitant]
     Indication: DUODENOGASTRIC REFLUX
     Dosage: 10 MG, UNK
     Route: 048
     Dates: start: 20071201
  6. ZOPICLONE [Concomitant]
     Indication: BIPOLAR DISORDER
     Dosage: 7.5 MG, UNK
     Route: 048
     Dates: start: 20071201

REACTIONS (7)
  - BLISTER [None]
  - CONTUSION [None]
  - FLUID RETENTION [None]
  - HYPOAESTHESIA FACIAL [None]
  - MOUTH ULCERATION [None]
  - SWELLING FACE [None]
  - YELLOW SKIN [None]
